FAERS Safety Report 6830982-X (Version None)
Quarter: 2010Q3

REPORT INFORMATION
  Report Type: 
  Country: None (occurrence: None)
  Receive Date: 20100712
  Receipt Date: 20100630
  Transmission Date: 20110219
  Serious: Yes (Life-Threatening, Hospitalization)
  Sender: FDA-Public Use
  Company Number: CZ-SANOFI-AVENTIS-200812285GDDC

PATIENT
  Age: 72 Year
  Sex: Male
  Weight: 105 kg

DRUGS (17)
  1. AFLIBERCEPT [Suspect]
     Dosage: DOSE UNIT: 6 MG/KG
     Route: 042
     Dates: start: 20080227, end: 20080227
  2. AFLIBERCEPT [Suspect]
     Route: 042
     Dates: start: 20080206, end: 20080206
  3. DOCETAXEL [Suspect]
     Dosage: DOSE UNIT: 75 MG/M**2
     Route: 042
     Dates: start: 20080227, end: 20080227
  4. DOCETAXEL [Suspect]
     Route: 042
     Dates: start: 20080206, end: 20080206
  5. PREDNISONE [Suspect]
     Route: 048
     Dates: start: 20080206, end: 20080227
  6. URINARY ANTISPASMODICS [Concomitant]
  7. PROTHIADEN /UNK/ [Concomitant]
  8. GODASAL [Concomitant]
  9. HEPARIN [Concomitant]
  10. DIMETICONE [Concomitant]
  11. VEROSPIRON [Concomitant]
  12. MILURIT [Concomitant]
  13. OMEPRAZOLE [Concomitant]
     Dates: start: 20080206, end: 20080728
  14. NEUROL /CZE/ [Concomitant]
  15. AGAPURIN [Concomitant]
     Dates: end: 20080310
  16. CERUCAL [Concomitant]
     Dates: start: 20080206, end: 20080227
  17. NEUPOGEN [Concomitant]
     Dates: start: 20080307, end: 20080309

REACTIONS (2)
  - ATRIAL FIBRILLATION [None]
  - AUTOIMMUNE THROMBOCYTOPENIA [None]
